FAERS Safety Report 10235735 (Version 1)
Quarter: 2014Q2

REPORT INFORMATION
  Report Type: Spontaneous
  Country: US (occurrence: None)
  Receive Date: 20140612
  Receipt Date: 20140612
  Transmission Date: 20141212
  Serious: No
  Sender: FDA-Public Use
  Company Number: None

PATIENT
  Age: 26 Year
  Sex: Female
  Weight: 113.4 kg

DRUGS (1)
  1. NEXPLANON [Suspect]
     Dates: start: 20140217, end: 20140609

REACTIONS (4)
  - Depressed mood [None]
  - Device breakage [None]
  - Suicidal ideation [None]
  - Mood swings [None]
